FAERS Safety Report 15815186 (Version 2)
Quarter: 2019Q1

REPORT INFORMATION
  Report Type: Report from Study
  Country: IT (occurrence: IT)
  Receive Date: 20190112
  Receipt Date: 20190123
  Transmission Date: 20190417
  Serious: Yes (Hospitalization)
  Sender: FDA-Public Use
  Company Number: IT-ACCORD-101224

PATIENT
  Age: 69 Year
  Sex: Male

DRUGS (1)
  1. CARBOPLATIN TEVA [Suspect]
     Active Substance: CARBOPLATIN
     Indication: LUNG NEOPLASM MALIGNANT
     Dates: start: 20180227, end: 20180227

REACTIONS (5)
  - Hyperpyrexia [Recovered/Resolved]
  - Leukopenia [Recovered/Resolved]
  - Tremor [Recovered/Resolved]
  - Thrombocytopenia [Recovered/Resolved]
  - Neutropenia [Recovered/Resolved]

NARRATIVE: CASE EVENT DATE: 20180312
